FAERS Safety Report 9383520 (Version 1)
Quarter: 2013Q3

REPORT INFORMATION
  Report Type: Spontaneous
  Country: US (occurrence: US)
  Receive Date: 20130704
  Receipt Date: 20130704
  Transmission Date: 20140515
  Serious: Yes (Hospitalization, Other)
  Sender: FDA-Public Use
  Company Number: US-ELI_LILLY_AND_COMPANY-US201306008818

PATIENT
  Age: 38 Year
  Sex: Female

DRUGS (1)
  1. HUMALOG LISPRO [Suspect]
     Dosage: UNK, PRN
     Route: 058

REACTIONS (6)
  - Hypoglycaemic seizure [Unknown]
  - Brain injury [Unknown]
  - Kidney infection [Unknown]
  - Blood glucose increased [Recovered/Resolved]
  - Tremor [Unknown]
  - Blood glucose decreased [Unknown]
